FAERS Safety Report 15493025 (Version 2)
Quarter: 2018Q4

REPORT INFORMATION
  Report Type: Spontaneous
  Country: US (occurrence: US)
  Receive Date: 20181012
  Receipt Date: 20181016
  Transmission Date: 20190205
  Serious: No
  Sender: FDA-Public Use
  Company Number: US-SA-2018SA278792

PATIENT
  Age: 71 Year
  Sex: Female

DRUGS (1)
  1. DUPIXENT [Suspect]
     Active Substance: DUPILUMAB
     Indication: DERMATITIS ATOPIC
     Dosage: INJECT 2 ML (1 SYRINGE) UNDER THE SKIN
     Route: 058
     Dates: start: 201808

REACTIONS (2)
  - Arthralgia [Unknown]
  - Myalgia [Unknown]
